FAERS Safety Report 16571576 (Version 2)
Quarter: 2019Q3

REPORT INFORMATION
  Report Type: Spontaneous
  Country: US (occurrence: US)
  Receive Date: 20190715
  Receipt Date: 20190716
  Transmission Date: 20191004
  Serious: No
  Sender: FDA-Public Use
  Company Number: US-GILEAD-2019-0418233

PATIENT
  Sex: Male

DRUGS (8)
  1. CLOMIPRAMINE HCL [Concomitant]
     Active Substance: CLOMIPRAMINE
     Dosage: UNKNOWN
  2. GLUCOSAMINE [Concomitant]
     Active Substance: GLUCOSAMINE
     Dosage: UNKNOWN
  3. EPCLUSA [Suspect]
     Active Substance: SOFOSBUVIR\VELPATASVIR
     Indication: CHRONIC HEPATITIS C
     Dosage: 1 DOSAGE FORM, QD
     Route: 048
     Dates: start: 201906
  4. TURMERIC CURCUMIN [CURCUMA LONGA] [Concomitant]
     Dosage: UNKNOWN
  5. MULTIVITAMINS [VITAMINS NOS] [Concomitant]
     Active Substance: VITAMINS
     Dosage: UNKNOWN
  6. MELATONIN [Concomitant]
     Active Substance: MELATONIN
     Dosage: UNKNOWN
  7. TADALAFIL. [Concomitant]
     Active Substance: TADALAFIL
     Dosage: UNKNOWN
  8. CLOMIPRAMINE HCL [Concomitant]
     Active Substance: CLOMIPRAMINE
     Dosage: UNKNOWN

REACTIONS (3)
  - Fatigue [Not Recovered/Not Resolved]
  - Nausea [Recovered/Resolved]
  - Dizziness [Not Recovered/Not Resolved]
